FAERS Safety Report 9418050 (Version 2)
Quarter: 2013Q3

REPORT INFORMATION
  Report Type: Spontaneous
  Country: FR (occurrence: FR)
  Receive Date: 20130724
  Receipt Date: 20130730
  Transmission Date: 20140515
  Serious: Yes (Hospitalization, Other)
  Sender: FDA-Public Use
  Company Number: FR-JNJFOC-20130700733

PATIENT
  Age: 23 Year
  Sex: Female
  Weight: 72 kg

DRUGS (11)
  1. TAVANIC [Suspect]
     Indication: INFECTION
     Dosage: 1625 MG
     Route: 042
     Dates: start: 20031124, end: 20031206
  2. TAVANIC [Suspect]
     Indication: INFECTION
     Dosage: 1625 MG
     Route: 042
  3. TRIFLUCAN [Suspect]
     Indication: INFECTION
     Dosage: CUMULATIVE DOSE TO 5200 MG
     Route: 042
     Dates: start: 20031124, end: 20031206
  4. TRIFLUCAN [Suspect]
     Indication: INFECTION
     Route: 042
  5. EUPANTOL [Suspect]
     Indication: INFECTION
     Dosage: CUMULATIVE DOSE:- 440 MG
     Route: 042
  6. EUPANTOL [Suspect]
     Indication: INFECTION
     Dosage: 440 MG CUMULATIVE DOSE FOR 11 DAYS
     Route: 042
     Dates: start: 20031124, end: 20031204
  7. VANCOMYCIN HCL [Suspect]
     Indication: INFECTION
     Dosage: CUMULATIVE DOSE- 13 MG
     Route: 042
     Dates: start: 20031124, end: 20031206
  8. MEROPENEM [Suspect]
     Indication: INFECTION
     Route: 042
     Dates: start: 20031124, end: 20031206
  9. CALCIPARIN [Suspect]
     Indication: PRODUCT USED FOR UNKNOWN INDICATION
     Route: 058
     Dates: start: 20031205, end: 20031215
  10. ACICLOVIR [Suspect]
     Indication: INFECTION
     Route: 065
     Dates: start: 200311
  11. CEFTRIAXONE SODIUM [Suspect]
     Indication: INFECTION
     Route: 065
     Dates: start: 200311

REACTIONS (11)
  - Multi-organ failure [Unknown]
  - Histiocytosis haematophagic [Unknown]
  - Agranulocytosis [Recovered/Resolved]
  - Leukopenia [Recovered/Resolved]
  - Histiocytosis haematophagic [Unknown]
  - Multi-organ failure [Unknown]
  - Aortic valve incompetence [Unknown]
  - Systemic lupus erythematosus [Unknown]
  - Encephalopathy [Unknown]
  - Nervous system disorder [Unknown]
  - Thrombocytopenia [Recovered/Resolved]
